FAERS Safety Report 8419714-1 (Version None)
Quarter: 2012Q2

REPORT INFORMATION
  Report Type: 
  Country: None (occurrence: None)
  Receive Date: 20120607
  Receipt Date: 20120601
  Transmission Date: 20120825
  Serious: Yes (Hospitalization, Other)
  Sender: FDA-Public Use
  Company Number: PHHO2012BR008513

PATIENT
  Sex: Male
  Weight: 98 kg

DRUGS (4)
  1. PREDNISOLONE [Suspect]
     Indication: RENAL TRANSPLANT
     Dosage: 5 MG, QD
     Route: 048
     Dates: start: 20110701, end: 20120521
  2. PREDNISONE [Suspect]
     Dosage: UNK
     Dates: start: 20120603
  3. MYFORTIC [Suspect]
     Indication: RENAL TRANSPLANT
     Dosage: 360 MG, BID
     Route: 048
     Dates: start: 20110701, end: 20120521
  4. CERTICAN [Suspect]
     Indication: RENAL TRANSPLANT
     Dosage: 2 MG, BID
     Route: 048
     Dates: start: 20110908

REACTIONS (2)
  - URINARY TRACT INFECTION [None]
  - TRANSITIONAL CELL CARCINOMA [None]
